FAERS Safety Report 11935709 (Version 1)
Quarter: 2016Q1

REPORT INFORMATION
  Report Type: Spontaneous
  Country: JP (occurrence: JP)
  Receive Date: 20160121
  Receipt Date: 20160121
  Transmission Date: 20160526
  Serious: Yes (Life-Threatening, Hospitalization)
  Sender: FDA-Public Use
  Company Number: PHBS1998JP27972

PATIENT
  Age: 21 Year
  Sex: Male
  Weight: 69 kg

DRUGS (3)
  1. VOLTAROL [Suspect]
     Active Substance: DICLOFENAC SODIUM
     Indication: PYREXIA
     Route: 048
     Dates: start: 19980114, end: 19980116
  2. TERNELIN (TIZANIDINE HYDROCHLORIDE) TABLET [Suspect]
     Active Substance: TIZANIDINE
     Route: 048
     Dates: start: 19980114, end: 19980116
  3. S.TAC-EVE (PROPIOTIC ACID DERIVATES) [Suspect]
     Active Substance: AMBROXOL HYDROCHLORIDE\ASCORBIC ACID\CAFFEINE\CHLORPHENIRAMINE MALEATE\DIHYDROCODEINE PHOSPHATE\IBUPROFEN\ISOPROPAMIDE IODIDE\METHYLEPHEDRINE HYDROCHLORIDE, (+/-)-\THIAMINE DISULFIDE
     Dosage: UNSPECIFIED
     Route: 048

REACTIONS (4)
  - Hepatitis toxic [Recovered/Resolved]
  - Disseminated intravascular coagulation [Recovered/Resolved]
  - Acute kidney injury [Recovered/Resolved]
  - Rhabdomyolysis [Recovered/Resolved]

NARRATIVE: CASE EVENT DATE: 19980116
